FAERS Safety Report 16241745 (Version 1)
Quarter: 2019Q2

REPORT INFORMATION
  Report Type: Spontaneous
  Country: FR (occurrence: FR)
  Receive Date: 20190426
  Receipt Date: 20190426
  Transmission Date: 20190711
  Serious: Yes (Hospitalization)
  Sender: FDA-Public Use
  Company Number: FR-TEVA-2019-FR-1041935

PATIENT
  Age: 72 Year
  Sex: Male
  Weight: 109 kg

DRUGS (18)
  1. PARACETAMOL [Concomitant]
     Active Substance: ACETAMINOPHEN
  2. GLICLAZIDE [Concomitant]
     Active Substance: GLICLAZIDE
  3. ACIDE FOLIQUE [Concomitant]
     Active Substance: FOLIC ACID
  4. FLUOXETINE (CHLORHYDRATE DE) [Concomitant]
     Active Substance: FLUOXETINE HYDROCHLORIDE
  5. METHOTREXATE. [Suspect]
     Active Substance: METHOTREXATE
     Indication: PEMPHIGOID
     Route: 058
     Dates: start: 20181212, end: 20190214
  6. DERMOVAL [Concomitant]
  7. CALCIPARINE [Concomitant]
     Active Substance: HEPARIN CALCIUM
  8. ESOMEPRAZOLE. [Concomitant]
     Active Substance: ESOMEPRAZOLE MAGNESIUM
  9. CETIRIZINE (DICHLORHYDRATE DE) [Concomitant]
     Active Substance: CETIRIZINE HYDROCHLORIDE
  10. NEFOPAM (CHLORHYDRATE DE) [Concomitant]
     Active Substance: NEFOPAM HYDROCHLORIDE
  11. AMLODIPINE [Concomitant]
     Active Substance: AMLODIPINE BESYLATE
  12. EUPRESSYL [Concomitant]
     Active Substance: URAPIDIL
  13. PREGABALINE [Concomitant]
     Active Substance: PREGABALIN
  14. ALLOPURINOL. [Concomitant]
     Active Substance: ALLOPURINOL
  15. XATRAL [Concomitant]
     Active Substance: ALFUZOSIN
  16. OROCAL D3, COMPRIM? ? SUCER [Concomitant]
     Active Substance: CALCIUM CARBONATE\CHOLECALCIFEROL
  17. FUROSEMIDE. [Concomitant]
     Active Substance: FUROSEMIDE
  18. DIFFU K, G?LULE [Concomitant]
     Active Substance: POTASSIUM CHLORIDE

REACTIONS (1)
  - Septic shock [Recovered/Resolved]

NARRATIVE: CASE EVENT DATE: 201812
